FAERS Safety Report 19805538 (Version 2)
Quarter: 2025Q3

REPORT INFORMATION
  Report Type: Spontaneous
  Country: EU (occurrence: EU)
  Receive Date: 20210908
  Receipt Date: 20250808
  Transmission Date: 20251021
  Serious: Yes (Hospitalization, Other)
  Sender: MYLAN
  Company Number: EU-002147023-NVSC2021PL071658

PATIENT
  Sex: Male

DRUGS (56)
  1. METOPROLOL [Suspect]
     Active Substance: METOPROLOL
  2. METOPROLOL [Suspect]
     Active Substance: METOPROLOL
     Route: 065
  3. METOPROLOL [Suspect]
     Active Substance: METOPROLOL
     Route: 065
  4. METOPROLOL [Suspect]
     Active Substance: METOPROLOL
  5. PANTOPRAZOLE [Suspect]
     Active Substance: PANTOPRAZOLE
  6. PANTOPRAZOLE [Suspect]
     Active Substance: PANTOPRAZOLE
     Route: 065
  7. PANTOPRAZOLE [Suspect]
     Active Substance: PANTOPRAZOLE
     Route: 065
  8. PANTOPRAZOLE [Suspect]
     Active Substance: PANTOPRAZOLE
  9. BISOPROLOL [Suspect]
     Active Substance: BISOPROLOL
     Indication: Cardiac failure
  10. BISOPROLOL [Suspect]
     Active Substance: BISOPROLOL
     Route: 065
  11. BISOPROLOL [Suspect]
     Active Substance: BISOPROLOL
     Route: 065
  12. BISOPROLOL [Suspect]
     Active Substance: BISOPROLOL
  13. AMIODARONE [Suspect]
     Active Substance: AMIODARONE
     Indication: Cardiac failure
  14. AMIODARONE [Suspect]
     Active Substance: AMIODARONE
     Route: 065
  15. AMIODARONE [Suspect]
     Active Substance: AMIODARONE
     Route: 065
  16. AMIODARONE [Suspect]
     Active Substance: AMIODARONE
  17. SACUBITRIL\VALSARTAN [Suspect]
     Active Substance: SACUBITRIL\VALSARTAN
     Indication: Cardiac failure
     Route: 065
  18. SACUBITRIL\VALSARTAN [Suspect]
     Active Substance: SACUBITRIL\VALSARTAN
  19. SACUBITRIL\VALSARTAN [Suspect]
     Active Substance: SACUBITRIL\VALSARTAN
  20. SACUBITRIL\VALSARTAN [Suspect]
     Active Substance: SACUBITRIL\VALSARTAN
     Route: 065
  21. SACUBITRIL\VALSARTAN [Suspect]
     Active Substance: SACUBITRIL\VALSARTAN
     Route: 065
  22. SACUBITRIL\VALSARTAN [Suspect]
     Active Substance: SACUBITRIL\VALSARTAN
  23. SACUBITRIL\VALSARTAN [Suspect]
     Active Substance: SACUBITRIL\VALSARTAN
  24. SACUBITRIL\VALSARTAN [Suspect]
     Active Substance: SACUBITRIL\VALSARTAN
     Route: 065
  25. SACUBITRIL\VALSARTAN [Suspect]
     Active Substance: SACUBITRIL\VALSARTAN
  26. SACUBITRIL\VALSARTAN [Suspect]
     Active Substance: SACUBITRIL\VALSARTAN
  27. SACUBITRIL\VALSARTAN [Suspect]
     Active Substance: SACUBITRIL\VALSARTAN
     Route: 065
  28. SACUBITRIL\VALSARTAN [Suspect]
     Active Substance: SACUBITRIL\VALSARTAN
     Route: 065
  29. SACUBITRIL\VALSARTAN [Suspect]
     Active Substance: SACUBITRIL\VALSARTAN
  30. SACUBITRIL\VALSARTAN [Suspect]
     Active Substance: SACUBITRIL\VALSARTAN
  31. SACUBITRIL\VALSARTAN [Suspect]
     Active Substance: SACUBITRIL\VALSARTAN
     Route: 065
  32. SACUBITRIL\VALSARTAN [Suspect]
     Active Substance: SACUBITRIL\VALSARTAN
     Route: 065
  33. WARFARIN [Suspect]
     Active Substance: WARFARIN
     Indication: Cardiac failure
  34. WARFARIN [Suspect]
     Active Substance: WARFARIN
     Route: 065
  35. WARFARIN [Suspect]
     Active Substance: WARFARIN
     Route: 065
  36. WARFARIN [Suspect]
     Active Substance: WARFARIN
  37. ALLOPURINOL [Suspect]
     Active Substance: ALLOPURINOL
     Indication: Cardiac failure
  38. ALLOPURINOL [Suspect]
     Active Substance: ALLOPURINOL
     Route: 065
  39. ALLOPURINOL [Suspect]
     Active Substance: ALLOPURINOL
     Route: 065
  40. ALLOPURINOL [Suspect]
     Active Substance: ALLOPURINOL
  41. RAMIPRIL [Suspect]
     Active Substance: RAMIPRIL
     Indication: Cardiac failure
  42. RAMIPRIL [Suspect]
     Active Substance: RAMIPRIL
     Route: 065
  43. RAMIPRIL [Suspect]
     Active Substance: RAMIPRIL
     Route: 065
  44. RAMIPRIL [Suspect]
     Active Substance: RAMIPRIL
  45. FERROUS SULFATE [Suspect]
     Active Substance: FERROUS SULFATE
     Indication: Cardiac failure
  46. FERROUS SULFATE [Suspect]
     Active Substance: FERROUS SULFATE
     Route: 065
  47. FERROUS SULFATE [Suspect]
     Active Substance: FERROUS SULFATE
     Route: 065
  48. FERROUS SULFATE [Suspect]
     Active Substance: FERROUS SULFATE
  49. TORSEMIDE [Suspect]
     Active Substance: TORSEMIDE
     Indication: Cardiac failure
  50. TORSEMIDE [Suspect]
     Active Substance: TORSEMIDE
     Route: 065
  51. TORSEMIDE [Suspect]
     Active Substance: TORSEMIDE
     Route: 065
  52. TORSEMIDE [Suspect]
     Active Substance: TORSEMIDE
  53. ATORVASTATIN [Suspect]
     Active Substance: ATORVASTATIN
     Indication: Cardiac failure
  54. ATORVASTATIN [Suspect]
     Active Substance: ATORVASTATIN
     Route: 065
  55. ATORVASTATIN [Suspect]
     Active Substance: ATORVASTATIN
     Route: 065
  56. ATORVASTATIN [Suspect]
     Active Substance: ATORVASTATIN

REACTIONS (15)
  - Arrhythmia [Unknown]
  - Cardiac failure [Unknown]
  - Cardiac failure chronic [Unknown]
  - Ejection fraction decreased [Unknown]
  - Cardiac dysfunction [Unknown]
  - Renal failure [Unknown]
  - Hyperthyroidism [Unknown]
  - Atrial fibrillation [Unknown]
  - Hyperkalaemia [Unknown]
  - Atrial flutter [Unknown]
  - Normocytic anaemia [Unknown]
  - Cardiac ventricular disorder [Unknown]
  - Peripheral arterial occlusive disease [Unknown]
  - Asthenia [Unknown]
  - Hypotension [Unknown]

NARRATIVE: CASE EVENT DATE: 20200601
